FAERS Safety Report 10206750 (Version 1)
Quarter: 2014Q2

REPORT INFORMATION
  Report Type: Spontaneous
  Country: BR (occurrence: BR)
  Receive Date: 20140530
  Receipt Date: 20140530
  Transmission Date: 20141212
  Serious: Yes (Other)
  Sender: FDA-Public Use
  Company Number: BR-SA-2014SA065357

PATIENT
  Age: 73 Year
  Sex: Female
  Weight: 80 kg

DRUGS (4)
  1. LANTUS [Suspect]
     Indication: TYPE 2 DIABETES MELLITUS
     Route: 058
  2. CLIKSTAR [Concomitant]
     Indication: TYPE 2 DIABETES MELLITUS
  3. ATENSINA [Concomitant]
     Indication: HYPERTENSION
     Route: 048
  4. HYDRALAZINE [Concomitant]
     Route: 048

REACTIONS (3)
  - Joint dislocation [Recovered/Resolved]
  - Swelling [Recovered/Resolved]
  - Pain [Recovered/Resolved]
